FAERS Safety Report 18467432 (Version 2)
Quarter: 2021Q1

REPORT INFORMATION
  Report Type: Report from Study
  Country: US (occurrence: US)
  Receive Date: 20201105
  Receipt Date: 20210219
  Transmission Date: 20210419
  Serious: Yes (Other)
  Sender: FDA-Public Use
  Company Number: US-PUMA BIOTECHNOLOGY, LTD.-2020US000020

PATIENT

DRUGS (2)
  1. NERLYNX [Suspect]
     Active Substance: NERATINIB
     Indication: BREAST CANCER FEMALE
     Dosage: 240 MG (6 TABLETS), DAILY
     Route: 048
     Dates: start: 20191204, end: 2020
  2. NERLYNX [Suspect]
     Active Substance: NERATINIB
     Indication: BONE CANCER
     Dosage: 160 MG (4 TABLETS), DAILY
     Route: 048
     Dates: start: 2020, end: 202012

REACTIONS (4)
  - Diarrhoea [Unknown]
  - Fall [Unknown]
  - Disease progression [Unknown]
  - Off label use [Unknown]

NARRATIVE: CASE EVENT DATE: 201912
